FAERS Safety Report 4390283-9 (Version None)
Quarter: 2004Q2

REPORT INFORMATION
  Report Type: 
  Country: None (occurrence: None)
  Receive Date: 20040630
  Receipt Date: 20040614
  Transmission Date: 20050107
  Serious: Yes (Other)
  Sender: FDA-Public Use
  Company Number: DEWYE822614JUN04

PATIENT
  Age: 27 Year
  Sex: Female

DRUGS (2)
  1. TREVILOR RETARD (VENLAFAXINE HYDROCHLORIDE EXTENDED RELEASE) [Suspect]
     Indication: DEPRESSION
     Dosage: 150 MG 1X PER 1 DAY, ORAL
     Route: 048
     Dates: start: 20020821, end: 20030806
  2. TREVILOR RETARD (VENLAFAXINE HYDROCHLORIDE, EXTENDED RELEASE) [Suspect]
     Indication: DEPRESSION
     Dosage: 75 MG 1X PER 1 DAY, ORAL
     Route: 048
     Dates: start: 20030807

REACTIONS (4)
  - CAESAREAN SECTION [None]
  - DRUG EXPOSURE DURING PREGNANCY [None]
  - FOETAL HEART RATE INCREASED [None]
  - PREGNANCY [None]
